FAERS Safety Report 25579023 (Version 1)
Quarter: 2025Q3

REPORT INFORMATION
  Report Type: Report from Study
  Country: AU (occurrence: AU)
  Receive Date: 20250718
  Receipt Date: 20250718
  Transmission Date: 20251020
  Serious: Yes (Hospitalization, Other)
  Sender: ABBVIE
  Company Number: AU-ABBVIE-6280781

PATIENT
  Age: 63 Year
  Sex: Female

DRUGS (4)
  1. HUMIRA [Suspect]
     Active Substance: ADALIMUMAB
     Indication: Crohn^s disease
     Route: 058
     Dates: start: 20250507, end: 20250507
  2. HUMIRA [Suspect]
     Active Substance: ADALIMUMAB
     Dosage: LAST ADMIN DATE: 2025
     Route: 058
     Dates: start: 2025
  3. HUMIRA [Suspect]
     Active Substance: ADALIMUMAB
     Route: 058
     Dates: start: 2025
  4. HUMIRA [Suspect]
     Active Substance: ADALIMUMAB
     Route: 058
     Dates: start: 202505, end: 202505

REACTIONS (13)
  - Hypertensive crisis [Recovered/Resolved]
  - Pain [Recovering/Resolving]
  - Crohn^s disease [Recovering/Resolving]
  - Ear infection [Recovering/Resolving]
  - Discomfort [Recovering/Resolving]
  - Eye inflammation [Not Recovered/Not Resolved]
  - Asthenia [Recovering/Resolving]
  - Pancreatic cyst [Not Recovered/Not Resolved]
  - Carbohydrate antigen 19-9 increased [Not Recovered/Not Resolved]
  - Intestinal stenosis [Not Recovered/Not Resolved]
  - Gastrointestinal carcinoma [Not Recovered/Not Resolved]
  - Migraine [Recovered/Resolved]
  - Eye pain [Recovering/Resolving]

NARRATIVE: CASE EVENT DATE: 20250101
